FAERS Safety Report 13466476 (Version 4)
Quarter: 2018Q4

REPORT INFORMATION
  Report Type: Report from Study
  Country: CA (occurrence: CA)
  Receive Date: 20170421
  Receipt Date: 20181011
  Transmission Date: 20190204
  Serious: Yes (Death)
  Sender: FDA-Public Use
  Company Number: CA-PFIZER INC-2017171919

PATIENT
  Age: 86 Year
  Sex: Male

DRUGS (1)
  1. HYDROMORPHONE HYDROCHLORIDE. [Suspect]
     Active Substance: HYDROMORPHONE HYDROCHLORIDE
     Dosage: 2 MG, UNK (2 MG/H, ABOUT 10-FOLD EXCESSIVE DOSE)
     Route: 042

REACTIONS (3)
  - Accidental overdose [Fatal]
  - Product administration error [Fatal]
  - Toxicity to various agents [Fatal]
